FAERS Safety Report 24543882 (Version 2)
Quarter: 2024Q4

REPORT INFORMATION
  Report Type: Report from Study
  Country: CA (occurrence: CA)
  Receive Date: 20241024
  Receipt Date: 20241112
  Transmission Date: 20250115
  Serious: Yes (Other)
  Sender: SANDOZ
  Company Number: CA-SANDOZ-SDZ2024CA082063

PATIENT
  Sex: Male

DRUGS (1)
  1. HYRIMOZ [Suspect]
     Active Substance: ADALIMUMAB-ADAZ
     Indication: Rheumatoid arthritis
     Dosage: 40 MG, QW (40 MG/0.8 ML)
     Route: 058
     Dates: start: 20240918

REACTIONS (5)
  - Arthropathy [Unknown]
  - Eye inflammation [Unknown]
  - Corneal disorder [Unknown]
  - Adrenal disorder [Unknown]
  - Off label use [Unknown]
